FAERS Safety Report 5754294-0 (Version None)
Quarter: 2008Q2

REPORT INFORMATION
  Report Type: 
  Country: None (occurrence: None)
  Receive Date: 20080530
  Receipt Date: 20080519
  Transmission Date: 20081010
  Serious: Yes (Hospitalization, Disabling)
  Sender: FDA-Public Use
  Company Number: US-ROCHE-408667

PATIENT
  Sex: Female
  Weight: 64.9 kg

DRUGS (9)
  1. ACCUTANE [Suspect]
     Route: 048
     Dates: start: 19920708, end: 19921101
  2. ACCUTANE [Suspect]
     Route: 048
     Dates: start: 20000126, end: 20000622
  3. BIRTH CONTROL PILLS [Concomitant]
     Indication: ORAL CONTRACEPTION
     Route: 048
  4. ORTHO TRI-CYCLEN [Concomitant]
     Indication: CONTRACEPTION
     Dates: start: 19991012
  5. ORTHO TRI-CYCLEN [Concomitant]
     Dates: start: 19991012
  6. PHENERGAN [Concomitant]
     Dosage: TAKEN EVERY 4-6 HOURS PRN.
     Dates: start: 19991012
  7. TYLENOL [Concomitant]
     Dates: start: 20000107
  8. ZANTAC [Concomitant]
     Dates: start: 20000107
  9. IBUROFEN [Concomitant]
     Indication: MUSCULOSKELETAL PAIN

REACTIONS (90)
  - ABDOMINAL DISTENSION [None]
  - ABORTION SPONTANEOUS [None]
  - ADENOMA BENIGN [None]
  - ANAEMIA [None]
  - ANHEDONIA [None]
  - ANXIETY [None]
  - ARTHRITIS [None]
  - BACK PAIN [None]
  - BILIRUBIN URINE [None]
  - BLINDNESS [None]
  - BLOOD ALKALINE PHOSPHATASE DECREASED [None]
  - BLOOD UREA INCREASED [None]
  - BONE PAIN [None]
  - BREAST DISCHARGE [None]
  - CHRONIC FATIGUE SYNDROME [None]
  - COLITIS [None]
  - COLITIS ULCERATIVE [None]
  - DECREASED APPETITE [None]
  - DEPRESSION [None]
  - DERMATITIS [None]
  - DIZZINESS [None]
  - DRUG EXPOSURE DURING PREGNANCY [None]
  - DRY SKIN [None]
  - ECZEMA [None]
  - ENDOMETRIOSIS [None]
  - EOSINOPHIL PERCENTAGE DECREASED [None]
  - FALLOPIAN TUBE DISORDER [None]
  - FIBROCYSTIC BREAST DISEASE [None]
  - FUNGAL INFECTION [None]
  - GALACTORRHOEA [None]
  - GASTRITIS [None]
  - GASTROINTESTINAL DISORDER [None]
  - GASTROOESOPHAGEAL REFLUX DISEASE [None]
  - GENITAL HAEMORRHAGE [None]
  - GLUCOSE URINE PRESENT [None]
  - HAEMATEMESIS [None]
  - HAEMOGLOBIN INCREASED [None]
  - HAEMORRHOIDS [None]
  - HEADACHE [None]
  - HELICOBACTER INFECTION [None]
  - HERNIA [None]
  - HYDRONEPHROSIS [None]
  - HYPOAESTHESIA [None]
  - INCISION SITE PAIN [None]
  - INFECTION [None]
  - INFLAMMATION [None]
  - INFLAMMATORY BOWEL DISEASE [None]
  - INJURY [None]
  - INSOMNIA [None]
  - INTESTINAL HAEMORRHAGE [None]
  - IRRITABLE BOWEL SYNDROME [None]
  - LIP DRY [None]
  - LYMPHOCYTE PERCENTAGE DECREASED [None]
  - MEAN CELL VOLUME INCREASED [None]
  - MELAENA [None]
  - MENORRHAGIA [None]
  - MUSCULOSKELETAL STIFFNESS [None]
  - NERVOUSNESS [None]
  - NEUTROPHIL PERCENTAGE INCREASED [None]
  - NITRITE URINE PRESENT [None]
  - OCCULT BLOOD POSITIVE [None]
  - PAIN [None]
  - PELVIC INFLAMMATORY DISEASE [None]
  - PELVIC PAIN [None]
  - PEPTIC ULCER [None]
  - PERIRECTAL ABSCESS [None]
  - PHARMACEUTICAL PRODUCT COMPLAINT [None]
  - POLLAKIURIA [None]
  - POSTOPERATIVE ADHESION [None]
  - PREGNANCY [None]
  - PROCTITIS [None]
  - PYREXIA [None]
  - RASH [None]
  - RECTAL HAEMORRHAGE [None]
  - RENAL DISORDER [None]
  - SEDATION [None]
  - THIRST [None]
  - UPPER RESPIRATORY TRACT INFECTION [None]
  - URGE INCONTINENCE [None]
  - URINARY SEDIMENT PRESENT [None]
  - URINE ANALYSIS ABNORMAL [None]
  - URINE ODOUR ABNORMAL [None]
  - UTERINE LEIOMYOMA [None]
  - UTERINE PROLAPSE [None]
  - VAGINAL CANDIDIASIS [None]
  - VAGINAL DISCHARGE [None]
  - VOMITING [None]
  - VULVOVAGINAL BURNING SENSATION [None]
  - WEIGHT DECREASED [None]
  - WHITE BLOOD CELLS URINE POSITIVE [None]
